FAERS Safety Report 7331397-0 (Version None)
Quarter: 2011Q1

REPORT INFORMATION
  Report Type: 
  Country: None (occurrence: None)
  Receive Date: 20110224
  Receipt Date: 20110209
  Transmission Date: 20110831
  Serious: Yes (Hospitalization)
  Sender: FDA-Public Use
  Company Number: 2011000642

PATIENT
  Age: 79 Year
  Sex: Male
  Weight: 78.8 kg

DRUGS (10)
  1. TARCEVA [Suspect]
     Indication: ACUTE MYELOID LEUKAEMIA
     Dosage: (150 MG, QD, ORAL) (150 MG, QD, ORAL)
     Route: 048
     Dates: start: 20110131, end: 20110209
  2. TARCEVA [Suspect]
     Indication: ACUTE MYELOID LEUKAEMIA
     Dosage: (150 MG, QD, ORAL) (150 MG, QD, ORAL)
     Route: 048
     Dates: start: 20110211
  3. LISINOPRIL [Concomitant]
  4. HYDROCODONE (HYDROCODONE) [Concomitant]
  5. TAMSULOSIN HCL [Concomitant]
  6. METOPROLOL (METOPROLOL) [Concomitant]
  7. NITROQUICK (GLYCERYL TRINITRATE) [Concomitant]
  8. LIPITOR [Concomitant]
  9. ZETIA [Concomitant]
  10. BUSPAR [Concomitant]

REACTIONS (7)
  - STREPTOCOCCAL INFECTION [None]
  - HERPES VIRUS INFECTION [None]
  - BLOOD CULTURE POSITIVE [None]
  - FEBRILE NEUTROPENIA [None]
  - WHITE BLOOD CELL COUNT DECREASED [None]
  - TONGUE DISORDER [None]
  - DIARRHOEA [None]
